FAERS Safety Report 7772693-2 (Version None)
Quarter: 2011Q3

REPORT INFORMATION
  Report Type: 
  Country: None (occurrence: None)
  Receive Date: 20110922
  Receipt Date: 20100330
  Transmission Date: 20111222
  Serious: No
  Sender: FDA-Public Use
  Company Number: US-ASTRAZENECA-2006UW09028

PATIENT
  Age: 14943 Day
  Sex: Male
  Weight: 162.4 kg

DRUGS (28)
  1. PRILOSEC [Concomitant]
  2. DITROPAN [Concomitant]
  3. METFORMIN [Concomitant]
  4. LOVAZA [Concomitant]
  5. LITHIUM [Concomitant]
     Dosage: 300 MG 3 TABLETS DAILY
     Dates: start: 20031114
  6. HYDROCHLOROTHIAZIDE [Concomitant]
  7. SEROQUEL [Suspect]
     Indication: SCHIZOPHRENIA
     Dosage: 100 TO 800 MG
     Route: 048
     Dates: start: 19970915, end: 20021001
  8. ZYPREXA [Suspect]
     Indication: SCHIZOPHRENIA
     Dates: start: 19970101, end: 19970901
  9. HALOPERIDOL [Concomitant]
  10. ELOCON [Concomitant]
  11. GEODON [Concomitant]
  12. GLYBURIDE [Concomitant]
  13. ETODOLAC [Concomitant]
  14. PREVACID [Concomitant]
  15. TIOTIXENE [Concomitant]
  16. LISINOPRIL [Concomitant]
  17. TRICOR [Concomitant]
  18. PROZAC [Concomitant]
  19. ZOLOFT [Concomitant]
     Dates: start: 20030718
  20. ACTOS [Concomitant]
  21. METOPROLOL [Concomitant]
  22. PENLAC [Concomitant]
  23. SEROQUEL [Suspect]
     Indication: DEPRESSION
     Dosage: 100 TO 800 MG
     Route: 048
     Dates: start: 19970915, end: 20021001
  24. RISPERDAL [Suspect]
     Indication: SCHIZOPHRENIA
     Dates: start: 19951101, end: 19970101
  25. FUROSEMIDE [Concomitant]
  26. OMACOR [Concomitant]
  27. ABILIFY [Concomitant]
     Dates: start: 20030718
  28. VESICARE [Concomitant]

REACTIONS (8)
  - DYSPNOEA [None]
  - CHEST PAIN [None]
  - DIZZINESS [None]
  - GASTROOESOPHAGEAL REFLUX DISEASE [None]
  - DIABETES MELLITUS [None]
  - OBESITY [None]
  - POLLAKIURIA [None]
  - CORONARY ARTERY DISEASE [None]
